FAERS Safety Report 19209521 (Version 4)
Quarter: 2021Q4

REPORT INFORMATION
  Report Type: Report from Study
  Country: CO (occurrence: CO)
  Receive Date: 20210504
  Receipt Date: 20211029
  Transmission Date: 20220303
  Serious: Yes (Hospitalization)
  Sender: FDA-Public Use
  Company Number: CO-JNJFOC-20210461409

PATIENT
  Age: 51 Year
  Sex: Female
  Weight: 82 kg

DRUGS (9)
  1. SIMPONI [Suspect]
     Active Substance: GOLIMUMAB
     Indication: Psoriatic arthropathy
     Route: 058
     Dates: start: 20181211, end: 20200914
  2. SIMPONI [Suspect]
     Active Substance: GOLIMUMAB
     Route: 058
     Dates: start: 20200320
  3. ATORVASTATIN [Concomitant]
     Active Substance: ATORVASTATIN
  4. LOSARTAN [Concomitant]
     Active Substance: LOSARTAN
  5. NIMESULIDE [Concomitant]
     Active Substance: NIMESULIDE
  6. DUODERM [PECTIN] [Concomitant]
  7. CARBOXYMETHYLCELLULOSE SODIUM [Concomitant]
     Active Substance: CARBOXYMETHYLCELLULOSE SODIUM
  8. LEFLUNOMIDE [Concomitant]
     Active Substance: LEFLUNOMIDE
  9. PREDNISOLONE [Concomitant]
     Active Substance: PREDNISOLONE

REACTIONS (3)
  - Cellulitis [Recovering/Resolving]
  - Procedural pain [Recovering/Resolving]
  - Haemoglobin decreased [Recovering/Resolving]

NARRATIVE: CASE EVENT DATE: 20210101
